FAERS Safety Report 25856663 (Version 1)
Quarter: 2025Q3

REPORT INFORMATION
  Report Type: Spontaneous
  Country: US (occurrence: US)
  Receive Date: 20250929
  Receipt Date: 20250929
  Transmission Date: 20251021
  Serious: Yes (Hospitalization)
  Sender: MACLEODS
  Company Number: US-MLMSERVICE-20250908-PI639836-00246-1

PATIENT

DRUGS (2)
  1. OLANZAPINE [Suspect]
     Active Substance: OLANZAPINE
     Indication: Antipsychotic therapy
     Dosage: STARTING AT 2.5MG DAILY AND INCREASING TO 10 MG TWICE DAILY WITHIN 2 WEEKS
     Route: 065
  2. OLANZAPINE [Suspect]
     Active Substance: OLANZAPINE
     Dosage: INCREASING TO 10 MG TWICE DAILY WITHIN 2 WEEKS
     Route: 065

REACTIONS (1)
  - Hyperglycaemia [Recovering/Resolving]
